FAERS Safety Report 7533291-9 (Version None)
Quarter: 2011Q2

REPORT INFORMATION
  Report Type: 
  Country: None (occurrence: None)
  Receive Date: 20110608
  Receipt Date: 20041021
  Transmission Date: 20111010
  Serious: Yes (Death, Hospitalization, Other)
  Sender: FDA-Public Use
  Company Number: PHHO2004CA08753

PATIENT
  Sex: Male

DRUGS (11)
  1. NITROGLYCERIN [Concomitant]
  2. COMBIVENT [Concomitant]
  3. COUMADIN [Concomitant]
  4. FLOVENT [Concomitant]
  5. CLOZAPINE [Suspect]
     Indication: SCHIZOPHRENIA
     Dosage: 200 MG, UNK
     Route: 048
     Dates: start: 19980424, end: 20040609
  6. VALPROIC ACID [Concomitant]
  7. CALCIUM CARBONATE [Concomitant]
  8. SIMVASTATIN [Concomitant]
  9. LACTULOSE [Concomitant]
  10. CLOZAPINE [Suspect]
     Dosage: 300 MG, UNK
     Route: 048
     Dates: start: 19980424, end: 20040609
  11. OMEPRAZOLE [Concomitant]

REACTIONS (6)
  - OXYGEN SATURATION DECREASED [None]
  - PNEUMONIA [None]
  - COUGH [None]
  - CYANOSIS [None]
  - DEATH [None]
  - DYSPNOEA [None]
